FAERS Safety Report 17569028 (Version 1)
Quarter: 2020Q1

REPORT INFORMATION
  Report Type: Spontaneous
  Country: US (occurrence: US)
  Receive Date: 20200316
  Receipt Date: 20200316
  Transmission Date: 20200409
  Serious: No
  Sender: FDA-Public Use
  Company Number: None

PATIENT
  Age: 88 Year
  Sex: Male

DRUGS (1)
  1. PRALUENT [Suspect]
     Active Substance: ALIROCUMAB
     Dosage: ?          OTHER DOSE:75;OTHER FREQUENCY:OTHER;?
     Route: 058
     Dates: start: 201904

REACTIONS (2)
  - Injection site rash [None]
  - Rash erythematous [None]

NARRATIVE: CASE EVENT DATE: 20200316
